FAERS Safety Report 17694376 (Version 1)
Quarter: 2020Q2

REPORT INFORMATION
  Report Type: Report from Study
  Country: IE (occurrence: IE)
  Receive Date: 20200422
  Receipt Date: 20200422
  Transmission Date: 20200714
  Serious: Yes (Other)
  Sender: FDA-Public Use
  Company Number: IE-JNJFOC-20200422424

PATIENT
  Age: 72 Year
  Sex: Female

DRUGS (14)
  1. ELTROXIN [Concomitant]
     Active Substance: LEVOTHYROXINE
  2. RIVOTRIL [Concomitant]
     Active Substance: CLONAZEPAM
  3. PALEXIA [Concomitant]
     Active Substance: TAPENTADOL HYDROCHLORIDE
  4. DESUNIN [Concomitant]
     Active Substance: CHOLECALCIFEROL
  5. STELARA [Suspect]
     Active Substance: USTEKINUMAB
  6. CLONAZEPAM. [Concomitant]
     Active Substance: CLONAZEPAM
  7. PALEXIA [Concomitant]
     Active Substance: TAPENTADOL HYDROCHLORIDE
  8. ENSURE [Concomitant]
     Active Substance: AMINO ACIDS\DEXTROSE\ELECTROLYTES NOS\SOYBEAN OIL\VITAMINS
  9. STELARA [Suspect]
     Active Substance: USTEKINUMAB
     Indication: VASCULITIS
     Dosage: 19A151MF/ EXP. 28 FEB 2022 ADMINISTERED 05-MAR-2020
     Route: 058
     Dates: start: 20160802
  10. AMITRIPTYLINE [Concomitant]
     Active Substance: AMITRIPTYLINE
  11. ASPIRIN                            /00002701/ [Concomitant]
     Active Substance: ASPIRIN
  12. PANTOPRAZOLE [Concomitant]
     Active Substance: PANTOPRAZOLE
  13. PARACETAMOL [Concomitant]
     Active Substance: ACETAMINOPHEN
  14. DELTACORTRIL [Concomitant]
     Active Substance: PREDNISOLONE

REACTIONS (3)
  - Product use in unapproved indication [Unknown]
  - Off label use [Unknown]
  - Ear infection [Recovered/Resolved]

NARRATIVE: CASE EVENT DATE: 202004
